FAERS Safety Report 6991361-8 (Version None)
Quarter: 2010Q3

REPORT INFORMATION
  Report Type: 
  Country: None (occurrence: None)
  Receive Date: 20100916
  Receipt Date: 20090616
  Transmission Date: 20110219
  Serious: Yes (Other)
  Sender: FDA-Public Use
  Company Number: US-WYE-H09775009

PATIENT
  Sex: Male

DRUGS (15)
  1. TORISEL [Suspect]
     Indication: METASTATIC RENAL CELL CARCINOMA
     Route: 042
     Dates: start: 20090417, end: 20090603
  2. KYTRIL [Concomitant]
     Indication: NAUSEA
     Dosage: AS NEEDED
     Route: 048
  3. FELODIPINE [Concomitant]
  4. QUINAPRIL [Concomitant]
  5. TERAZOSIN HCL [Concomitant]
  6. CLONIDINE [Concomitant]
  7. FUROSEMIDE [Concomitant]
  8. NIASPAN [Concomitant]
  9. COZAAR [Concomitant]
  10. VERAPAMIL [Concomitant]
  11. AVAPRO [Concomitant]
  12. INSULIN [Concomitant]
  13. SIMVASTATIN [Concomitant]
  14. PRISTIQ [Concomitant]
  15. KLOR-CON [Concomitant]

REACTIONS (1)
  - INTERSTITIAL LUNG DISEASE [None]
